FAERS Safety Report 24093839 (Version 2)
Quarter: 2024Q3

REPORT INFORMATION
  Report Type: Spontaneous
  Country: IT (occurrence: IT)
  Receive Date: 20240716
  Receipt Date: 20240824
  Transmission Date: 20241017
  Serious: Yes (Hospitalization, Other)
  Sender: GENMAB
  Company Number: IT-ABBVIE-5834589

PATIENT
  Age: 66 Year
  Sex: Female
  Weight: 65 kg

DRUGS (10)
  1. EPCORITAMAB [Suspect]
     Active Substance: EPCORITAMAB
     Indication: Diffuse large B-cell lymphoma
     Dosage: PRIMING (0.16 MG); INTERMEDIATE (0.8 MG; FULL (48 MG)
     Route: 058
     Dates: start: 20240523, end: 20240610
  2. ACYCLOVIR SODIUM [Concomitant]
     Active Substance: ACYCLOVIR SODIUM
     Indication: Antiviral prophylaxis
     Dosage: 400 MG FREQUENCY TEXT: ONCE EVERY 12 HOURS
     Route: 048
     Dates: start: 20180512
  3. TOCILIZUMAB [Concomitant]
     Active Substance: TOCILIZUMAB
     Indication: Cytokine release syndrome
     Dosage: UNK
     Route: 065
     Dates: start: 20240611, end: 20240612
  4. LAMIVUDINE TEVA [Concomitant]
     Indication: Antiviral prophylaxis
     Dosage: 100 MG FREQUENCY TEXT: ONCE EVERY 24 HOURS
     Route: 048
     Dates: start: 20180524
  5. METFORMIN HYDROCHLORIDE [Concomitant]
     Active Substance: METFORMIN HYDROCHLORIDE
     Indication: Steroid diabetes
     Dosage: 500 MG FREQUENCY TEXT: 3 TIMES A DAY
     Route: 048
     Dates: start: 20240405
  6. BACTRIM [Concomitant]
     Active Substance: SULFAMETHOXAZOLE\TRIMETHOPRIM
     Indication: Antifungal prophylaxis
     Dosage: 800-160 MG FREQUENCY TEXT: THREE TIMES A WEEK
     Route: 048
     Dates: start: 20180612
  7. APIXABAN [Concomitant]
     Active Substance: APIXABAN
     Indication: Thrombosis prophylaxis
     Dosage: 2.5 MG FREQUENCY TEXT: 2 TIMES A DAY
     Route: 048
     Dates: start: 20240104, end: 20240521
  8. DEXAMETHASONE ACETATE [Concomitant]
     Active Substance: DEXAMETHASONE ACETATE
     Indication: Cytokine release syndrome
     Dosage: 10 MG X4/DIE
     Route: 065
     Dates: start: 20240610, end: 20240614
  9. DEXAMETHASONE ACETATE [Concomitant]
     Active Substance: DEXAMETHASONE ACETATE
     Dosage: 10 MG X2/DIE
     Route: 065
     Dates: start: 20240615, end: 20240619
  10. LEVOTHYROXINE SODIUM [Concomitant]
     Active Substance: LEVOTHYROXINE SODIUM
     Indication: Hypothyroidism
     Dosage: 100 MCG FREQUENCY TEXT: ONCE EVERY 24 HOURS
     Route: 048
     Dates: start: 20180808

REACTIONS (6)
  - Stress cardiomyopathy [Recovered/Resolved]
  - Hypotension [Recovered/Resolved]
  - Hypoxia [Recovered/Resolved]
  - Fatigue [Recovered/Resolved]
  - Cytokine release syndrome [Recovered/Resolved]
  - Pyrexia [Recovered/Resolved]

NARRATIVE: CASE EVENT DATE: 20240101
